FAERS Safety Report 6039353-X (Version None)
Quarter: 2009Q1

REPORT INFORMATION
  Report Type: 
  Country: None (occurrence: None)
  Receive Date: 20090114
  Receipt Date: 20090105
  Transmission Date: 20090719
  Serious: Yes (Hospitalization)
  Sender: FDA-Public Use
  Company Number: DEP_00201_2009

PATIENT
  Age: 74 Year
  Sex: Female

DRUGS (2)
  1. METFORMIN HCL [Suspect]
     Indication: DIABETES MELLITUS
     Dosage: 850 MG 1X/8 HOURS)
  2. GLYBENCLAMIDE [Concomitant]

REACTIONS (13)
  - BLOOD GLUCOSE INCREASED [None]
  - BLOOD POTASSIUM DECREASED [None]
  - BLOOD SODIUM INCREASED [None]
  - DEHYDRATION [None]
  - DISORIENTATION [None]
  - GASTROINTESTINAL HYPOMOTILITY [None]
  - HEART RATE INCREASED [None]
  - KUSSMAUL RESPIRATION [None]
  - LOSS OF CONSCIOUSNESS [None]
  - METABOLIC ACIDOSIS [None]
  - PANCREATITIS ACUTE [None]
  - RECTAL ADENOMA [None]
  - RENAL FAILURE ACUTE [None]
